FAERS Safety Report 19310090 (Version 2)
Quarter: 2021Q2

REPORT INFORMATION
  Report Type: Spontaneous
  Country: US (occurrence: US)
  Receive Date: 20210526
  Receipt Date: 20210608
  Transmission Date: 20210717
  Serious: No
  Sender: FDA-Public Use
  Company Number: US-MYLANLABS-2021M1028693

PATIENT
  Age: 58 Year
  Sex: Female
  Weight: 70.76 kg

DRUGS (1)
  1. TRIAMCINOLONE ACETONIDE CREAM, USP [Suspect]
     Active Substance: TRIAMCINOLONE ACETONIDE
     Dosage: 0.1 PERCENT PUT IT ON BODY PARTS OF THE RASH THREE TIMES A DAY
     Dates: start: 20210420

REACTIONS (1)
  - Drug ineffective [Not Recovered/Not Resolved]

NARRATIVE: CASE EVENT DATE: 20210420
